FAERS Safety Report 8523977-1 (Version None)
Quarter: 2012Q3

REPORT INFORMATION
  Report Type: 
  Country: None (occurrence: None)
  Receive Date: 20120720
  Receipt Date: 20120711
  Transmission Date: 20120928
  Serious: Yes (Hospitalization)
  Sender: FDA-Public Use
  Company Number: US-ELI_LILLY_AND_COMPANY-US201207003677

PATIENT
  Sex: Female

DRUGS (18)
  1. PREDNISONE [Concomitant]
     Dosage: 4 MG, QD
  2. LEXAPRO [Concomitant]
     Dosage: 10 MG, AT NIGHT
  3. REMICADE [Concomitant]
     Indication: RHEUMATOID ARTHRITIS
     Dosage: 1/4 SOLUTION Q 8 WEEKS
     Route: 042
  4. LEUCOVORIN CALCIUM [Concomitant]
     Dosage: 2.5 MG, WEEKLY (1/W)
  5. PLAVIX [Concomitant]
     Dosage: 75 MG, UNK
  6. TOPROL-XL [Concomitant]
     Dosage: 25 MG, QD
  7. METHOTREXATE [Concomitant]
     Dosage: 2.5 MG, 3/W
  8. REMICADE [Concomitant]
     Dosage: 1 BAD EVERY 2 MONTHS
     Route: 042
  9. VYTORIN [Concomitant]
  10. MELOXICAM [Concomitant]
     Indication: RHEUMATOID ARTHRITIS
     Dosage: 7.5 MG, QD
  11. KLOR-CON [Concomitant]
     Dosage: 20/20 MEG TID
  12. PRILOSEC [Concomitant]
     Indication: ULCER
  13. ADVAIR DISKUS 100/50 [Concomitant]
     Dosage: 2 SPRAYS EACH MORNING
     Route: 055
  14. CALCIUM [Concomitant]
  15. FORTEO [Suspect]
     Indication: OSTEOPOROSIS
     Dosage: 20 UG, QD
     Dates: start: 20120201
  16. VAGISIL [Concomitant]
  17. ADVAIR DISKUS 100/50 [Concomitant]
     Dosage: 2 SPRAYS EACH EVENING
     Route: 055
  18. LEXAPRO [Concomitant]
     Dosage: 10 MG, EACH MORNING

REACTIONS (1)
  - DEVICE FAILURE [None]
